FAERS Safety Report 21102564 (Version 1)
Quarter: 2022Q3

REPORT INFORMATION
  Report Type: Report from Study
  Country: US (occurrence: US)
  Receive Date: 20220719
  Receipt Date: 20220719
  Transmission Date: 20221026
  Serious: Yes (Other)
  Sender: FDA-Public Use
  Company Number: US-ABBVIE-22K-163-4473213-00

PATIENT
  Sex: Female

DRUGS (2)
  1. RINVOQ [Suspect]
     Active Substance: UPADACITINIB
     Indication: Product used for unknown indication
     Route: 048
  2. JANSSEN COVID-19 VACCINE [Concomitant]
     Active Substance: AD26.COV2.S
     Indication: COVID-19 immunisation
     Dosage: FIRST DOSE
     Route: 030
     Dates: start: 20210405, end: 20210405

REACTIONS (9)
  - Cervix carcinoma [Unknown]
  - Migraine [Recovered/Resolved]
  - Photophobia [Unknown]
  - Hyperacusis [Unknown]
  - Gastrointestinal disorder [Not Recovered/Not Resolved]
  - Pulmonary mass [Unknown]
  - Adverse drug reaction [Unknown]
  - Nausea [Unknown]
  - Headache [Unknown]
